FAERS Safety Report 5142098-1 (Version None)
Quarter: 2006Q4

REPORT INFORMATION
  Report Type: 
  Country: None (occurrence: None)
  Receive Date: 20061102
  Receipt Date: 20060721
  Transmission Date: 20070319
  Serious: Yes (Other)
  Sender: FDA-Public Use
  Company Number: US-BAYER-200614755BWH

PATIENT
  Age: 66 Year
  Sex: Male

DRUGS (9)
  1. NEXAVAR [Suspect]
     Indication: MALIGNANT MELANOMA STAGE IV
     Dosage: TOTAL DAILY DOSE: 800 MG  UNIT DOSE: 200 MG
     Route: 048
     Dates: start: 20060615
  2. CARBO [Suspect]
     Indication: MALIGNANT MELANOMA
     Dates: start: 20060615
  3. CARBO [Suspect]
     Dates: start: 20060701
  4. TAXOL [Suspect]
     Indication: MALIGNANT MELANOMA
     Dates: start: 20060615
  5. TAXOL [Suspect]
     Dates: start: 20060701
  6. SYNTHROID [Concomitant]
  7. NEURONTIN [Concomitant]
  8. VICODIN [Concomitant]
  9. ARANESP [Concomitant]

REACTIONS (7)
  - BLOOD LACTATE DEHYDROGENASE INCREASED [None]
  - BONE MARROW TOXICITY [None]
  - NEUROPATHY [None]
  - PETECHIAE [None]
  - PYREXIA [None]
  - RASH [None]
  - THROMBOCYTOPENIA [None]
